FAERS Safety Report 21307160 (Version 1)
Quarter: 2022Q3

REPORT INFORMATION
  Report Type: Spontaneous
  Country: US (occurrence: None)
  Receive Date: 20220907
  Receipt Date: 20220907
  Transmission Date: 20221027
  Serious: No
  Sender: FDA-Public Use
  Company Number: None

PATIENT
  Age: 57 Year
  Sex: Female

DRUGS (1)
  1. EVEROLIMUS [Suspect]
     Active Substance: EVEROLIMUS
     Dosage: FREQUENCY : DAILY;?
     Route: 048

REACTIONS (5)
  - Oedema [None]
  - Ascites [None]
  - Neoplasm malignant [None]
  - Hepatic lesion [None]
  - Therapy cessation [None]

NARRATIVE: CASE EVENT DATE: 20220802
